FAERS Safety Report 8609100-3 (Version None)
Quarter: 2012Q3

REPORT INFORMATION
  Report Type: 
  Country: None (occurrence: None)
  Receive Date: 20120821
  Receipt Date: 20120810
  Transmission Date: 20120928
  Serious: Yes (Other)
  Sender: FDA-Public Use
  Company Number: DE-ELI_LILLY_AND_COMPANY-DE201208003004

PATIENT
  Age: 50 Year
  Sex: Female
  Weight: 70 kg

DRUGS (6)
  1. LIMPTAR [Concomitant]
     Dosage: 400 MG, OTHER
  2. CYMBALTA [Suspect]
     Dosage: 180 MG, OTHER
  3. ALCOHOL [Concomitant]
  4. LORAZEPAM [Concomitant]
     Dosage: 48 MG, OTHER
  5. FLUPIRTINE MALEATE [Concomitant]
  6. TANNACOMP [Concomitant]

REACTIONS (4)
  - MYDRIASIS [None]
  - OVERDOSE [None]
  - DRUG ABUSE [None]
  - SOPOR [None]
